FAERS Safety Report 4341575-0 (Version None)
Quarter: 2004Q2

REPORT INFORMATION
  Report Type: 
  Country: None (occurrence: None)
  Receive Date: 20040419
  Receipt Date: 20040419
  Transmission Date: 20050107
  Serious: Yes (Hospitalization)
  Sender: FDA-Public Use
  Company Number: None

PATIENT
  Sex: Male
  Weight: 70.7611 kg

DRUGS (4)
  1. TOPETECAN 4 MG GSK [Suspect]
     Indication: SMALL CELL LUNG CANCER STAGE UNSPECIFIED
     Dosage: 7.4 MG QWX6 IV
     Route: 042
     Dates: start: 20040315, end: 20040405
  2. COMBIVENT INH [Concomitant]
  3. ADVAIR INH [Concomitant]
  4. TYLENOL #II [Concomitant]

REACTIONS (2)
  - LOBAR PNEUMONIA [None]
  - PLEURAL EFFUSION [None]
